FAERS Safety Report 4493016-0 (Version None)
Quarter: 2004Q4

REPORT INFORMATION
  Report Type: 
  Country: None (occurrence: None)
  Receive Date: 20041102
  Receipt Date: 20041021
  Transmission Date: 20050328
  Serious: Yes (Hospitalization)
  Sender: FDA-Public Use
  Company Number: 200410194BBE

PATIENT
  Sex: Male

DRUGS (1)
  1. PROLASTIN [Suspect]
     Dosage: INTRAVENOUS
     Route: 042

REACTIONS (3)
  - BLOOD GASES ABNORMAL [None]
  - BODY TEMPERATURE INCREASED [None]
  - DYSPNOEA [None]
